FAERS Safety Report 23445616 (Version 1)
Quarter: 2024Q1

REPORT INFORMATION
  Report Type: Spontaneous
  Country: PL (occurrence: PL)
  Receive Date: 20240126
  Receipt Date: 20240126
  Transmission Date: 20240410
  Serious: Yes (Hospitalization, Other)
  Sender: FDA-Public Use
  Company Number: PL-BRISTOL-MYERS SQUIBB COMPANY-2024-013272

PATIENT
  Age: 78 Year
  Sex: Female
  Weight: 72 kg

DRUGS (2)
  1. NIVOLUMAB [Suspect]
     Active Substance: NIVOLUMAB
     Indication: Pleural mesothelioma
     Dosage: DOSE : NIVO 210MG (3MG/KG ),  FREQ : NIVO EVERY 3 WEEKS,
     Route: 042
     Dates: start: 20211214
  2. IPILIMUMAB [Suspect]
     Active Substance: IPILIMUMAB
     Indication: Pleural mesothelioma
     Dosage: DOSE : IPI 70MG (1MG/KG );   FREQ :  IPI EVERY 6 WEEKS
     Route: 042
     Dates: start: 20211214

REACTIONS (7)
  - Cardiotoxicity [Unknown]
  - Pleural effusion [Unknown]
  - Transaminases increased [Recovering/Resolving]
  - Sinus tachycardia [Recovering/Resolving]
  - Diastolic dysfunction [Recovering/Resolving]
  - Ventricular extrasystoles [Recovering/Resolving]
  - Off label use [Unknown]

NARRATIVE: CASE EVENT DATE: 20211201
